FAERS Safety Report 6686604-4 (Version None)
Quarter: 2010Q2

REPORT INFORMATION
  Report Type: 
  Country: None (occurrence: None)
  Receive Date: 20100419
  Receipt Date: 20100414
  Transmission Date: 20101027
  Serious: Yes (Death)
  Sender: FDA-Public Use
  Company Number: CA-ROCHE-697436

PATIENT
  Sex: Male

DRUGS (2)
  1. PEGASYS [Suspect]
     Indication: HEPATITIS C
     Route: 058
     Dates: start: 20091222, end: 20100301
  2. COPEGUS [Suspect]
     Indication: HEPATITIS C
     Dosage: DOSE ADMINISTERED 600 MG IN MORNING AND 400 MG IN NIGHT
     Route: 048
     Dates: start: 20091222, end: 20100301

REACTIONS (1)
  - DEATH [None]
